FAERS Safety Report 9442185 (Version 1)
Quarter: 2013Q3

REPORT INFORMATION
  Report Type: Spontaneous
  Country: US (occurrence: US)
  Receive Date: 20130806
  Receipt Date: 20130806
  Transmission Date: 20140515
  Serious: No
  Sender: FDA-Public Use
  Company Number: US-VERTEX PHARMACEUTICALS INC-2013-008478

PATIENT
  Age: 35 Year
  Sex: Male

DRUGS (3)
  1. INCIVEK [Suspect]
     Indication: HEPATITIS C
     Dosage: 750 MG, TID
     Route: 048
     Dates: start: 20130617
  2. RIBAVIRIN [Suspect]
     Indication: HEPATITIS C
     Dosage: 3 DF, BID
     Dates: start: 20130617
  3. PEGASYS [Suspect]
     Indication: HEPATITIS C
     Dosage: 180 ?G, QW
     Dates: start: 20130617

REACTIONS (2)
  - Insomnia [Not Recovered/Not Resolved]
  - Pruritus [Not Recovered/Not Resolved]
